FAERS Safety Report 21775912 (Version 1)
Quarter: 2022Q4

REPORT INFORMATION
  Report Type: Spontaneous
  Country: US (occurrence: US)
  Receive Date: 20221226
  Receipt Date: 20221226
  Transmission Date: 20230112
  Serious: No
  Sender: FDA-Public Use
  Company Number: US-MIGRATION_PFIZER-2022BHV002473

PATIENT
  Age: 71 Year
  Sex: Female
  Weight: 70.370 kg

DRUGS (1)
  1. NURTEC ODT [Suspect]
     Active Substance: RIMEGEPANT SULFATE
     Indication: Migraine
     Dosage: 1 TABLET, THE DOSE SHE TOOK WAS HER FIRST DOSE. SHE STILL HAS 12 REMAINING TABLETS.
     Route: 048
     Dates: start: 20220912

REACTIONS (2)
  - Incorrect route of product administration [Unknown]
  - Therapeutic product effect variable [Not Recovered/Not Resolved]

NARRATIVE: CASE EVENT DATE: 20220912
